FAERS Safety Report 5126065-X (Version None)
Quarter: 2006Q4

REPORT INFORMATION
  Report Type: 
  Country: None (occurrence: None)
  Receive Date: 20061012
  Receipt Date: 20061002
  Transmission Date: 20070319
  Serious: Yes (Other)
  Sender: FDA-Public Use
  Company Number: GR-ROCHE-465846

PATIENT
  Age: 55 Year
  Sex: Female

DRUGS (1)
  1. BONIVA [Suspect]
     Indication: OSTEOPOROSIS
     Dosage: FILM COATED
     Route: 048

REACTIONS (4)
  - DERMATITIS ALLERGIC [None]
  - DYSURIA [None]
  - FACE OEDEMA [None]
  - PRURITUS GENERALISED [None]
